FAERS Safety Report 13028448 (Version 2)
Quarter: 2017Q1

REPORT INFORMATION
  Report Type: Spontaneous
  Country: FI (occurrence: FI)
  Receive Date: 20161214
  Receipt Date: 20170125
  Transmission Date: 20170428
  Serious: Yes (Other)
  Sender: FDA-Public Use
  Company Number: FI-ENDO PHARMACEUTICALS INC.-2016-007315

PATIENT
  Age: 60 Year
  Sex: Male

DRUGS (1)
  1. AVEED [Suspect]
     Active Substance: TESTOSTERONE UNDECANOATE
     Indication: SECONDARY HYPOGONADISM
     Dosage: 1000 MG, UNKNOWN
     Route: 030
     Dates: start: 20161014

REACTIONS (1)
  - Pulmonary oil microembolism [Recovered/Resolved]

NARRATIVE: CASE EVENT DATE: 20161014
